FAERS Safety Report 14383946 (Version 1)
Quarter: 2018Q1

REPORT INFORMATION
  Report Type: Spontaneous
  Country: TR (occurrence: TR)
  Receive Date: 20180115
  Receipt Date: 20180115
  Transmission Date: 20180509
  Serious: Yes (Other)
  Sender: FDA-Public Use
  Company Number: TR-BAYER-2018-002152

PATIENT
  Age: 34 Year
  Sex: Female

DRUGS (2)
  1. INTERFERON BETA - 1B [Suspect]
     Active Substance: INTERFERON BETA-1B
     Indication: RELAPSING-REMITTING MULTIPLE SCLEROSIS
     Dosage: UNK
     Route: 058
     Dates: start: 2005, end: 2008
  2. FINGOLIMOD. [Concomitant]
     Active Substance: FINGOLIMOD

REACTIONS (3)
  - Weight decreased [None]
  - Expanded disability status scale score increased [None]
  - Multiple sclerosis [None]
